FAERS Safety Report 11274654 (Version 1)
Quarter: 2015Q3

REPORT INFORMATION
  Report Type: Spontaneous
  Country: US (occurrence: US)
  Receive Date: 20150715
  Receipt Date: 20150715
  Transmission Date: 20151125
  Serious: Yes (Other)
  Sender: FDA-Public Use
  Company Number: US-AMGEN-USASP2015068001

PATIENT
  Age: 74 Year
  Sex: Female

DRUGS (1)
  1. PROLIA [Suspect]
     Active Substance: DENOSUMAB
     Indication: OSTEOPOROSIS POSTMENOPAUSAL
     Route: 065
     Dates: start: 201408

REACTIONS (7)
  - Photopsia [Unknown]
  - Ovarian cancer metastatic [Unknown]
  - Local swelling [Unknown]
  - Cytogenetic analysis abnormal [Unknown]
  - Metastases to large intestine [Unknown]
  - Rash [Unknown]
  - Arthropod bite [Unknown]

NARRATIVE: CASE EVENT DATE: 20141205
